FAERS Safety Report 8539541-4 (Version None)
Quarter: 2012Q3

REPORT INFORMATION
  Report Type: 
  Country: None (occurrence: None)
  Receive Date: 20120726
  Receipt Date: 20120712
  Transmission Date: 20120928
  Serious: Yes (Other)
  Sender: FDA-Public Use
  Company Number: US-ELI_LILLY_AND_COMPANY-US201203004917

PATIENT
  Sex: Male
  Weight: 92.517 kg

DRUGS (4)
  1. HUMALOG [Concomitant]
     Indication: DIABETES MELLITUS
     Dosage: 5 IU, BID
  2. LISINOPRIL [Concomitant]
     Indication: HYPERTENSION
     Dosage: 10 MG, QD
  3. CYMBALTA [Suspect]
     Indication: DIABETIC NEUROPATHY
     Dosage: UNK, UNKNOWN
  4. LYRICA [Concomitant]
     Indication: NEUROPATHY PERIPHERAL
     Dosage: 300 MG, QD
     Dates: start: 20110101

REACTIONS (5)
  - SUICIDAL IDEATION [None]
  - PAIN [None]
  - NAUSEA [None]
  - GASTRIC DISORDER [None]
  - DRUG INEFFECTIVE [None]
